FAERS Safety Report 16162986 (Version 3)
Quarter: 2019Q2

REPORT INFORMATION
  Report Type: Spontaneous
  Country: JP (occurrence: JP)
  Receive Date: 20190405
  Receipt Date: 20190501
  Transmission Date: 20190711
  Serious: Yes (Hospitalization)
  Sender: FDA-Public Use
  Company Number: JP-ROCHE-2297291

PATIENT
  Age: 69 Year
  Sex: Male

DRUGS (2)
  1. XELODA [Suspect]
     Active Substance: CAPECITABINE
     Indication: COLON CANCER
     Route: 048
     Dates: start: 20190227, end: 20190320
  2. AVASTIN [Suspect]
     Active Substance: BEVACIZUMAB
     Indication: COLON CANCER
     Route: 041
     Dates: start: 20190227, end: 20190320

REACTIONS (3)
  - Diarrhoea [Not Recovered/Not Resolved]
  - Rectal perforation [Not Recovered/Not Resolved]
  - Portal venous gas [Recovered/Resolved]

NARRATIVE: CASE EVENT DATE: 20190323
